FAERS Safety Report 7354466-8 (Version None)
Quarter: 2011Q1

REPORT INFORMATION
  Report Type: 
  Country: None (occurrence: None)
  Receive Date: 20110316
  Receipt Date: 20110217
  Transmission Date: 20110831
  Serious: Yes (Hospitalization, Other)
  Sender: FDA-Public Use
  Company Number: US-BAYER-201038419NA

PATIENT
  Sex: Female
  Weight: 150 kg

DRUGS (6)
  1. AZITHROMYCIN [Concomitant]
  2. YASMIN [Suspect]
     Indication: PRODUCT USED FOR UNKNOWN INDICATION
     Dosage: UNK UNK, UNK
     Route: 048
     Dates: start: 20060701, end: 20070701
  3. ANTIBIOTICS [Concomitant]
     Indication: CELLULITIS
  4. LEVAQUIN [Concomitant]
  5. ANTIBIOTICS [Concomitant]
     Indication: BRONCHITIS
  6. HYDROCODONE BITARTRATE [Concomitant]

REACTIONS (2)
  - DEEP VEIN THROMBOSIS [None]
  - PULMONARY EMBOLISM [None]
